FAERS Safety Report 7421407-4 (Version None)
Quarter: 2011Q2

REPORT INFORMATION
  Report Type: 
  Country: None (occurrence: None)
  Receive Date: 20110407
  Receipt Date: 20110401
  Transmission Date: 20111010
  Serious: Yes (Other)
  Sender: FDA-Public Use
  Company Number: 2011SP012937

PATIENT
  Age: 30 Year
  Sex: Male

DRUGS (3)
  1. FENTANYL [Concomitant]
  2. ROCURONIUM BROMIDE [Suspect]
     Indication: CROHN'S DISEASE
  3. PROPOFOL [Concomitant]

REACTIONS (1)
  - PERITONEAL HAEMORRHAGE [None]
